FAERS Safety Report 15670851 (Version 4)
Quarter: 2019Q1

REPORT INFORMATION
  Report Type: Report from Study
  Country: CA (occurrence: CA)
  Receive Date: 20181129
  Receipt Date: 20190123
  Transmission Date: 20190417
  Serious: Yes (Other)
  Sender: FDA-Public Use
  Company Number: PHHY2015CA146187

PATIENT
  Age: 66 Year
  Sex: Female

DRUGS (20)
  1. XOLAIR [Suspect]
     Active Substance: OMALIZUMAB
     Dosage: UNK
     Route: 058
     Dates: start: 20170807
  2. XOLAIR [Suspect]
     Active Substance: OMALIZUMAB
     Dosage: UNK
     Route: 058
     Dates: start: 20160916
  3. XOLAIR [Suspect]
     Active Substance: OMALIZUMAB
     Dosage: 300 MG, EVERY 4 WEEKS
     Route: 058
     Dates: start: 20181130
  4. DOXEPIN [Concomitant]
     Active Substance: DOXEPIN
     Indication: PRODUCT USED FOR UNKNOWN INDICATION
     Dosage: 10 MG, UNK
     Route: 065
  5. XOLAIR [Suspect]
     Active Substance: OMALIZUMAB
     Dosage: UNK
     Route: 058
     Dates: start: 20160527
  6. XOLAIR [Suspect]
     Active Substance: OMALIZUMAB
     Dosage: 450 MG, EVERY 4 WEEKS
     Route: 058
     Dates: start: 20160205
  7. XOLAIR [Suspect]
     Active Substance: OMALIZUMAB
     Dosage: UNK
     Route: 058
     Dates: start: 20170918
  8. XOLAIR [Suspect]
     Active Substance: OMALIZUMAB
     Dosage: 375 MG, BIW
     Route: 058
     Dates: start: 20170109
  9. XOLAIR [Suspect]
     Active Substance: OMALIZUMAB
     Dosage: 300 MG, EVERY 4 WEEKS
     Route: 058
     Dates: start: 20180928
  10. AERIUS (DESLORATADINE) [Concomitant]
     Active Substance: DESLORATADINE
     Indication: PRODUCT USED FOR UNKNOWN INDICATION
     Dosage: 4 DF, QD
     Route: 065
  11. ZANTAC [Concomitant]
     Active Substance: RANITIDINE HYDROCHLORIDE
     Indication: PRODUCT USED FOR UNKNOWN INDICATION
     Dosage: 1 DF, BID
     Route: 065
  12. XOLAIR [Suspect]
     Active Substance: OMALIZUMAB
     Dosage: UNK
     Route: 058
     Dates: start: 20151211
  13. XOLAIR [Suspect]
     Active Substance: OMALIZUMAB
     Dosage: UNK
     Route: 058
     Dates: start: 20160304
  14. XOLAIR [Suspect]
     Active Substance: OMALIZUMAB
     Dosage: UNK
     Route: 058
     Dates: start: 20161111
  15. XOLAIR [Suspect]
     Active Substance: OMALIZUMAB
     Dosage: 450 MG, EVERY 4 WEEKS
     Route: 058
     Dates: start: 20161209, end: 20161209
  16. MONTELUKAST SODIUM. [Suspect]
     Active Substance: MONTELUKAST SODIUM
     Indication: PRODUCT USED FOR UNKNOWN INDICATION
     Dosage: 10 MG, QD
     Route: 065
  17. AERIUS (DESLORATADINE) [Suspect]
     Active Substance: DESLORATADINE
     Indication: URTICARIA
     Route: 065
  18. XOLAIR [Suspect]
     Active Substance: OMALIZUMAB
     Dosage: UNK
     Route: 058
     Dates: start: 20160819
  19. XOLAIR [Suspect]
     Active Substance: OMALIZUMAB
     Dosage: UNK
     Route: 058
     Dates: start: 20170821
  20. XOLAIR [Suspect]
     Active Substance: OMALIZUMAB
     Indication: CHRONIC SPONTANEOUS URTICARIA
     Dosage: 300 MG, EVERY 4 WEEKS
     Route: 058
     Dates: start: 20151016

REACTIONS (29)
  - Fibromyalgia [Unknown]
  - Rash erythematous [Not Recovered/Not Resolved]
  - Gastrointestinal disorder [Unknown]
  - Feeling hot [Recovered/Resolved]
  - Diarrhoea [None]
  - Gastric ulcer [None]
  - Pneumonia [Unknown]
  - Insomnia [Unknown]
  - Erythema [Recovered/Resolved]
  - Pulmonary mass [Unknown]
  - Fatigue [Unknown]
  - Gastric ulcer [Unknown]
  - Dyspepsia [Unknown]
  - Pruritus [Recovered/Resolved]
  - Renal disorder [Unknown]
  - Nasopharyngitis [Unknown]
  - Drug ineffective [Unknown]
  - Hepatic mass [None]
  - Abdominal discomfort [Unknown]
  - Nervousness [Not Recovered/Not Resolved]
  - Hypotension [Unknown]
  - Hypophagia [Unknown]
  - Respiratory rate increased [Unknown]
  - Urticaria [Recovered/Resolved]
  - Urticaria [Unknown]
  - Pain in extremity [Unknown]
  - Urticaria [None]
  - Insomnia [None]
  - Hypotension [None]

NARRATIVE: CASE EVENT DATE: 201601
